FAERS Safety Report 4663848-4 (Version None)
Quarter: 2005Q2

REPORT INFORMATION
  Report Type: 
  Country: None (occurrence: None)
  Receive Date: 20050511
  Receipt Date: 20050408
  Transmission Date: 20051028
  Serious: Yes (Other)
  Sender: FDA-Public Use
  Company Number: 401670

PATIENT
  Sex: Female

DRUGS (1)
  1. PEGASYS [Suspect]
     Dosage: OTHER
     Route: 050

REACTIONS (2)
  - ACCIDENTAL EXPOSURE [None]
  - HEPATITIS C POSITIVE [None]
